FAERS Safety Report 9696655 (Version 1)
Quarter: 2013Q4

REPORT INFORMATION
  Report Type: Spontaneous
  Country: US (occurrence: None)
  Receive Date: 20131115
  Receipt Date: 20131115
  Transmission Date: 20140711
  Serious: Yes (Other)
  Sender: FDA-Public Use
  Company Number: HRA-CDB20130234

PATIENT
  Age: 32 Year
  Sex: Female
  Weight: 58.06 kg

DRUGS (4)
  1. ELLA [Suspect]
     Indication: POST COITAL CONTRACEPTION
     Dosage: 30MG (30MG, 1 IN 1D)
     Dates: start: 20130514, end: 20130514
  2. COQ10 (UBIDECARENONE) [Concomitant]
  3. VEGON IRON (IRON) [Concomitant]
  4. HERBAL SUPPLEMENT (HERBAL EXTRACT NOS) [Concomitant]

REACTIONS (7)
  - Unintended pregnancy [None]
  - Bacterial vaginosis [None]
  - Muscle spasms [None]
  - Pain [None]
  - Subchorionic haemorrhage [None]
  - Abortion induced [None]
  - Blighted ovum [None]
